FAERS Safety Report 13738887 (Version 1)
Quarter: 2017Q3

REPORT INFORMATION
  Report Type: Report from Study
  Country: US (occurrence: US)
  Receive Date: 20170710
  Receipt Date: 20170710
  Transmission Date: 20171127
  Serious: No
  Sender: FDA-Public Use
  Company Number: US-SAOL THERAPEUTICS-2017SAO01013

PATIENT
  Age: 44 Year
  Sex: Female

DRUGS (13)
  1. COMPOUNDED BACLOFEN [Suspect]
     Active Substance: BACLOFEN
     Dosage: 256.31 ?G, \DAY
     Route: 037
     Dates: start: 20160606, end: 20160725
  2. BUPIVICAINE [Suspect]
     Active Substance: BUPIVACAINE
     Dosage: 11.932 MG, \DAY
     Route: 037
     Dates: start: 20160913
  3. FENTANYL. [Suspect]
     Active Substance: FENTANYL
     Dosage: 875.2 ?G, \DAY
     Route: 037
     Dates: start: 20160726, end: 20160913
  4. BUPIVICAINE [Suspect]
     Active Substance: BUPIVACAINE
     Dosage: 13.207 MG, \DAY
     Route: 037
     Dates: start: 20160606, end: 20160726
  5. COMPOUNDED BACLOFEN [Suspect]
     Active Substance: BACLOFEN
     Dosage: 256.51 ?G, \DAY
     Route: 037
     Dates: start: 20160726, end: 20160913
  6. CLONIDINE. [Suspect]
     Active Substance: CLONIDINE
     Dosage: 715.8 ?G, \DAY
     Route: 037
     Dates: start: 20160606, end: 20160726
  7. CLONIDINE. [Suspect]
     Active Substance: CLONIDINE
     Dosage: 716.4 ?G, \DAY
     Route: 037
     Dates: start: 20160726, end: 20160913
  8. COMPOUNDED BACLOFEN [Suspect]
     Active Substance: BACLOFEN
     Dosage: 231.56 ?G, \DAY
     Route: 037
     Dates: start: 20160913
  9. FENTANYL. [Suspect]
     Active Substance: FENTANYL
     Dosage: 874.5 ?G, \DAY
     Dates: start: 20160606, end: 20160726
  10. BUPIVICAINE [Suspect]
     Active Substance: BUPIVACAINE
     Dosage: 13.218 MG, \DAY
     Route: 037
     Dates: start: 20160726, end: 20160913
  11. FENTANYL. [Suspect]
     Active Substance: FENTANYL
     Dosage: 790.0 ?G, \DAY
     Route: 037
     Dates: start: 20160913
  12. COMPOUNDED BACLOFEN [Suspect]
     Active Substance: BACLOFEN
     Dosage: 201.36 ?G, \DAY
     Route: 037
     Dates: start: 20160913
  13. CLONIDINE. [Suspect]
     Active Substance: CLONIDINE
     Dosage: 699.6 ?G, \DAY
     Route: 037
     Dates: start: 20160913

REACTIONS (5)
  - Fall [Unknown]
  - Muscular weakness [Unknown]
  - Back pain [Unknown]
  - Device malfunction [Recovered/Resolved]
  - Hypoaesthesia [Unknown]

NARRATIVE: CASE EVENT DATE: 20160907
